FAERS Safety Report 22367506 (Version 2)
Quarter: 2023Q2

REPORT INFORMATION
  Report Type: Report from Study
  Country: CA (occurrence: CA)
  Receive Date: 20230525
  Receipt Date: 20230619
  Transmission Date: 20230722
  Serious: Yes (Other)
  Sender: FDA-Public Use
  Company Number: CA-ELI_LILLY_AND_COMPANY-CA202209007642

PATIENT
  Age: 60 Year
  Sex: Female

DRUGS (2)
  1. ERBITUX [Suspect]
     Active Substance: CETUXIMAB
     Indication: Product used for unknown indication
     Dosage: UNK UNK, UNKNOWN
     Route: 065
  2. ERBITUX [Suspect]
     Active Substance: CETUXIMAB
     Dosage: UNK UNK, UNKNOWN
     Route: 065

REACTIONS (15)
  - Skin lesion [Recovering/Resolving]
  - Blood pressure increased [Unknown]
  - Dry mouth [Unknown]
  - Cheilitis [Unknown]
  - Pain [Unknown]
  - Pain of skin [Unknown]
  - Dyspepsia [Unknown]
  - Somnolence [Unknown]
  - Dry skin [Unknown]
  - Nausea [Unknown]
  - Skin fissures [Unknown]
  - Vomiting [Unknown]
  - Mucosal inflammation [Unknown]
  - Fatigue [Unknown]
  - Rash [Unknown]

NARRATIVE: CASE EVENT DATE: 20220901
